FAERS Safety Report 11878653 (Version 1)
Quarter: 2015Q4

REPORT INFORMATION
  Report Type: Spontaneous
  Country: NL (occurrence: NL)
  Receive Date: 20151230
  Receipt Date: 20151230
  Transmission Date: 20160305
  Serious: Yes (Disabling)
  Sender: FDA-Public Use
  Company Number: NL-PFIZER INC-2015456964

PATIENT
  Age: 42 Year
  Sex: Female

DRUGS (1)
  1. CYKLOKAPRON [Suspect]
     Active Substance: TRANEXAMIC ACID
     Indication: UTERINE LEIOMYOMA
     Dosage: 1000 MG, 3X/DAY
     Route: 042
     Dates: start: 20151201

REACTIONS (2)
  - Cerebral infarction [Unknown]
  - Hemianopia [Unknown]

NARRATIVE: CASE EVENT DATE: 20151203
